FAERS Safety Report 26216388 (Version 1)
Quarter: 2025Q4

REPORT INFORMATION
  Report Type: Spontaneous
  Country: US (occurrence: US)
  Receive Date: 20251231
  Receipt Date: 20251231
  Transmission Date: 20260117
  Serious: Yes (Hospitalization, Other)
  Sender: SCIEGEN PHARMACEUTICALS INC
  Company Number: US-SCIEGENP-2025SCLIT00403

PATIENT
  Age: 3 Decade
  Sex: Female

DRUGS (3)
  1. DIVALPROEX SODIUM [Suspect]
     Active Substance: DIVALPROEX SODIUM
     Indication: Seizure
     Dosage: EXTENDED RELEASE
     Route: 065
  2. PERAMPANEL [Concomitant]
     Active Substance: PERAMPANEL
     Indication: Seizure
     Route: 065
  3. PREGABALIN [Concomitant]
     Active Substance: PREGABALIN
     Indication: Seizure
     Route: 065

REACTIONS (5)
  - Unmasking of previously unidentified disease [Unknown]
  - Mitochondrial DNA mutation [Unknown]
  - Acute hepatic failure [Unknown]
  - Encephalopathy [Unknown]
  - Drug-induced liver injury [Unknown]
